FAERS Safety Report 20544061 (Version 3)
Quarter: 2022Q1

REPORT INFORMATION
  Report Type: Spontaneous
  Country: MX (occurrence: MX)
  Receive Date: 20220303
  Receipt Date: 20220330
  Transmission Date: 20220423
  Serious: Yes (Other)
  Sender: FDA-Public Use
  Company Number: MX-LUPIN PHARMACEUTICALS INC.-2022-02543

PATIENT
  Sex: Male
  Weight: 1.59 kg

DRUGS (15)
  1. METHYLPREDNISOLONE [Suspect]
     Active Substance: METHYLPREDNISOLONE
     Indication: Burkitt^s lymphoma
     Dosage: 1 GRAM, QD THREE PULSE DOSES
     Route: 064
  2. LINEZOLID [Suspect]
     Active Substance: LINEZOLID
     Indication: Septic shock
     Dosage: 600 MG, BID
     Route: 064
  3. LINEZOLID [Suspect]
     Active Substance: LINEZOLID
     Indication: Mastitis
  4. PREDNISONE [Suspect]
     Active Substance: PREDNISONE
     Indication: Burkitt^s lymphoma
     Dosage: UNK AS PER THE R-EPOCH REGIMEN
     Route: 064
  5. DOXORUBICIN [Suspect]
     Active Substance: DOXORUBICIN
     Indication: Burkitt^s lymphoma
     Dosage: 45 MILLIGRAM/SQ. METER AS PER THE CHOP REGIMEN
     Route: 064
  6. DOXORUBICIN [Suspect]
     Active Substance: DOXORUBICIN
     Dosage: UNK AS PER THE R-EPOCH REGIMEN
     Route: 064
  7. VINCRISTINE [Suspect]
     Active Substance: VINCRISTINE
     Indication: Burkitt^s lymphoma
     Dosage: 1.4 MILLIGRAM/SQ. METER AS PER THE CHOP REGIMEN
     Route: 064
  8. VINCRISTINE [Suspect]
     Active Substance: VINCRISTINE
     Dosage: UNK AS PER THE R-EPOCH REGIMEN
     Route: 064
  9. CYCLOPHOSPHAMIDE [Suspect]
     Active Substance: CYCLOPHOSPHAMIDE
     Indication: Burkitt^s lymphoma
     Dosage: 700 MILLIGRAM/SQ. METER FOR 1 DAY; AS PER THE CHOP REGIMEN
     Route: 064
  10. CYCLOPHOSPHAMIDE [Suspect]
     Active Substance: CYCLOPHOSPHAMIDE
     Dosage: UNK AS PER THE R-EPOCH REGIMEN
     Route: 064
  11. RITUXIMAB [Suspect]
     Active Substance: RITUXIMAB
     Indication: Burkitt^s lymphoma
     Dosage: UNK AS PER THE R-EPOCH REGIMEN
     Route: 064
  12. ETOPOSIDE [Suspect]
     Active Substance: ETOPOSIDE
     Indication: Burkitt^s lymphoma
     Dosage: UNK AS PER THE R-EPOCH REGIMEN
     Route: 064
  13. PIPERACILLIN SODIUM\TAZOBACTAM SODIUM [Suspect]
     Active Substance: PIPERACILLIN SODIUM\TAZOBACTAM SODIUM
     Indication: Septic shock
     Dosage: 4.5 GRAM, QID
     Route: 064
  14. PIPERACILLIN SODIUM\TAZOBACTAM SODIUM [Suspect]
     Active Substance: PIPERACILLIN SODIUM\TAZOBACTAM SODIUM
     Indication: Mastitis
  15. DEXAMETHASONE [Suspect]
     Active Substance: DEXAMETHASONE
     Indication: Drug therapy
     Dosage: UNK
     Route: 064

REACTIONS (4)
  - Foetal growth restriction [Unknown]
  - Premature baby [Unknown]
  - Low birth weight baby [Unknown]
  - Foetal exposure during pregnancy [Unknown]
